FAERS Safety Report 6938496-3 (Version None)
Quarter: 2010Q3

REPORT INFORMATION
  Report Type: 
  Country: None (occurrence: None)
  Receive Date: 20100824
  Receipt Date: 20100810
  Transmission Date: 20110219
  Serious: Yes (Hospitalization, Other)
  Sender: FDA-Public Use
  Company Number: US-ELI_LILLY_AND_COMPANY-US201003005389

PATIENT
  Age: 35 Year
  Sex: Female

DRUGS (4)
  1. STRATTERA [Suspect]
     Indication: ATTENTION DEFICIT/HYPERACTIVITY DISORDER
     Dosage: 1 D/F, UNK
     Dates: start: 20100223
  2. STRATTERA [Suspect]
     Dosage: 80 MG, DAILY (1/D)
  3. BENZODIAZEPINE DERIVATIVES [Concomitant]
  4. SOMA [Concomitant]

REACTIONS (5)
  - DRUG WITHDRAWAL CONVULSIONS [None]
  - FALL [None]
  - MOVEMENT DISORDER [None]
  - NAUSEA [None]
  - VOMITING [None]
